FAERS Safety Report 9073130 (Version 1)
Quarter: 2013Q1

REPORT INFORMATION
  Report Type: Report from Study
  Country: US (occurrence: US)
  Receive Date: 20130129
  Receipt Date: 20130129
  Transmission Date: 20140127
  Serious: No
  Sender: FDA-Public Use
  Company Number: US-ABBOTT-12P-163-0933779-00

PATIENT
  Sex: Male
  Weight: 101.24 kg

DRUGS (3)
  1. HUMIRA 40 MG/0.8 ML PEN [Suspect]
     Indication: RHEUMATOID ARTHRITIS
     Route: 058
     Dates: start: 2001
  2. UNKNOWN MEDICATION [Concomitant]
     Indication: HYPERTENSION
  3. PREDNISONE [Concomitant]
     Indication: RHEUMATOID ARTHRITIS
     Dates: start: 2001

REACTIONS (1)
  - Weight increased [Not Recovered/Not Resolved]
